FAERS Safety Report 19275994 (Version 1)
Quarter: 2021Q2

REPORT INFORMATION
  Report Type: Spontaneous
  Country: RO (occurrence: RO)
  Receive Date: 20210519
  Receipt Date: 20210519
  Transmission Date: 20210717
  Serious: Yes (Other)
  Sender: FDA-Public Use
  Company Number: RO-PFIZER INC-2021213005

PATIENT
  Age: 56 Year
  Sex: Female

DRUGS (2)
  1. SULFASALAZINA [Concomitant]
     Active Substance: SULFASALAZINE
     Dosage: 3 G
     Dates: start: 2016
  2. XELJANZ [Suspect]
     Active Substance: TOFACITINIB CITRATE
     Indication: RHEUMATOID ARTHRITIS
     Dosage: 5 MG, 2X/DAY
     Dates: start: 201809

REACTIONS (2)
  - Hepatitis C [Unknown]
  - Hepatitis C RNA increased [Unknown]

NARRATIVE: CASE EVENT DATE: 201903
